FAERS Safety Report 10161334 (Version 15)
Quarter: 2018Q3

REPORT INFORMATION
  Report Type: Report from Study
  Country: CA (occurrence: CA)
  Receive Date: 20140509
  Receipt Date: 20180724
  Transmission Date: 20181010
  Serious: Yes (Other)
  Sender: FDA-Public Use
  Company Number: CA-ROCHE-1273330

PATIENT
  Age: 70 Year
  Sex: Female
  Weight: 58 kg

DRUGS (23)
  1. SYNTHROID [Concomitant]
     Active Substance: LEVOTHYROXINE SODIUM
  2. DIPHENHYDRAMINE HYDROCHLORIDE. [Concomitant]
     Active Substance: DIPHENHYDRAMINE HYDROCHLORIDE
     Indication: PREMEDICATION
     Route: 048
     Dates: start: 20130815, end: 20170123
  3. AMLODIPINE [Concomitant]
     Active Substance: AMLODIPINE BESYLATE
  4. RITUXAN [Suspect]
     Active Substance: RITUXIMAB
     Dosage: DATE OF PREVIOUS DOSE : 05/FEB/015
     Route: 042
     Dates: start: 20140610
  5. METHYLPREDNISOLONE. [Suspect]
     Active Substance: METHYLPREDNISOLONE
     Indication: PRODUCT USED FOR UNKNOWN INDICATION
     Route: 042
     Dates: start: 20130815, end: 20170123
  6. PARIET [Concomitant]
     Active Substance: RABEPRAZOLE SODIUM
  7. ADVAIR HFA [Concomitant]
     Active Substance: FLUTICASONE PROPIONATE\SALMETEROL XINAFOATE
  8. SELENIUM [Concomitant]
     Active Substance: SELENIUM
  9. VITAMIN E [Concomitant]
     Active Substance: .ALPHA.-TOCOPHEROL
  10. RITUXAN [Suspect]
     Active Substance: RITUXIMAB
     Indication: RHEUMATOID ARTHRITIS
     Route: 042
     Dates: start: 20130815, end: 20170123
  11. PAMIDRONATE [Concomitant]
     Active Substance: PAMIDRONATE DISODIUM
  12. HYZAAR [Concomitant]
     Active Substance: HYDROCHLOROTHIAZIDE\LOSARTAN POTASSIUM
  13. SINGULAIR [Concomitant]
     Active Substance: MONTELUKAST SODIUM
  14. FLONASE SPRAY [Concomitant]
  15. FOLIC ACID. [Concomitant]
     Active Substance: FOLIC ACID
  16. SLOW?K [Concomitant]
     Active Substance: POTASSIUM CHLORIDE
  17. ABILIFY [Concomitant]
     Active Substance: ARIPIPRAZOLE
  18. TYLENOL [Concomitant]
     Active Substance: ACETAMINOPHEN
     Indication: PREMEDICATION
     Route: 048
     Dates: start: 20140530, end: 20170123
  19. ORENCIA [Suspect]
     Active Substance: ABATACEPT
     Indication: RHEUMATOID ARTHRITIS
     Route: 065
  20. ARAVA [Concomitant]
     Active Substance: LEFLUNOMIDE
  21. EFFEXOR [Concomitant]
     Active Substance: VENLAFAXINE HYDROCHLORIDE
  22. VITAMIN C [Concomitant]
     Active Substance: ASCORBIC ACID
  23. SALMON OIL [Concomitant]
     Active Substance: FISH OIL

REACTIONS (30)
  - Peripheral swelling [Recovering/Resolving]
  - Fatigue [Not Recovered/Not Resolved]
  - Pruritus [Not Recovered/Not Resolved]
  - Pain in extremity [Unknown]
  - Erythema [Unknown]
  - Vasculitis [Unknown]
  - Agitation [Recovered/Resolved]
  - Oxygen saturation decreased [Unknown]
  - Feeling hot [Unknown]
  - Lethargy [Not Recovered/Not Resolved]
  - Fatigue [Not Recovered/Not Resolved]
  - Rib fracture [Unknown]
  - Intervertebral disc degeneration [Unknown]
  - Flushing [Unknown]
  - Blood pressure increased [Unknown]
  - Headache [Unknown]
  - Hypersensitivity [Unknown]
  - H1N1 influenza [Not Recovered/Not Resolved]
  - Oral pain [Unknown]
  - Joint swelling [Not Recovered/Not Resolved]
  - Tongue discomfort [Recovered/Resolved]
  - Rheumatoid arthritis [Unknown]
  - Erythema [Unknown]
  - Complex regional pain syndrome [Unknown]
  - Blood pressure systolic increased [Unknown]
  - Drug ineffective [Unknown]
  - Cold sweat [Recovered/Resolved]
  - Arthralgia [Unknown]
  - Oral mucosal erythema [Unknown]
  - Treatment failure [Unknown]

NARRATIVE: CASE EVENT DATE: 20130815
